FAERS Safety Report 24584468 (Version 3)
Quarter: 2024Q4

REPORT INFORMATION
  Report Type: Report from Study
  Country: JP (occurrence: JP)
  Receive Date: 20241106
  Receipt Date: 20241203
  Transmission Date: 20250114
  Serious: Yes (Life-Threatening, Hospitalization)
  Sender: PFIZER
  Company Number: JP-PFIZER INC-PV202400142843

PATIENT
  Age: 41 Year
  Sex: Male
  Weight: 68.8 kg

DRUGS (33)
  1. MEROPENEM [Suspect]
     Active Substance: MEROPENEM
     Dosage: 3 G, QD
     Route: 041
     Dates: start: 20241008, end: 20241024
  2. ENZOMENIB [Suspect]
     Active Substance: ENZOMENIB
     Indication: Acute myeloid leukaemia
     Dosage: 300 MG, BID
     Route: 048
     Dates: start: 20240606, end: 20240619
  3. ENZOMENIB [Suspect]
     Active Substance: ENZOMENIB
     Dosage: 300 MG, BID
     Route: 048
     Dates: start: 20240806, end: 20241001
  4. POSACONAZOLE [Suspect]
     Active Substance: POSACONAZOLE
     Dosage: 300 MG, QD
     Route: 048
     Dates: start: 20240523, end: 20241008
  5. AMBISOME [Suspect]
     Active Substance: AMPHOTERICIN B
     Indication: Febrile neutropenia
     Dosage: 150 MG, QD
     Route: 041
     Dates: start: 20241015, end: 20241016
  6. AMBISOME [Suspect]
     Active Substance: AMPHOTERICIN B
     Indication: Fungal infection
     Dosage: 200 MG, QD
     Route: 041
     Dates: start: 20241017, end: 20241021
  7. AMBISOME [Suspect]
     Active Substance: AMPHOTERICIN B
     Dosage: 300 MG, QD
     Route: 041
     Dates: start: 20241022
  8. ACYCLOVIR [Concomitant]
     Active Substance: ACYCLOVIR
     Indication: Infection prophylaxis
     Dosage: UNK
     Dates: start: 20241018
  9. ACETAMINOPHEN [Concomitant]
     Active Substance: ACETAMINOPHEN
     Indication: Pyrexia
     Dosage: UNK
     Dates: start: 20240607
  10. HYALURONATE SODIUM [Concomitant]
     Active Substance: HYALURONATE SODIUM
     Indication: Dry eye
     Dosage: UNK
     Dates: start: 20240607
  11. PARAFFIN [Concomitant]
     Active Substance: PARAFFIN
     Indication: Lip dry
     Dosage: UNK
     Dates: start: 20240608
  12. RINDERON VG [Concomitant]
     Active Substance: BETAMETHASONE VALERATE\GENTAMICIN SULFATE
     Indication: Rash
     Dosage: UNK
     Dates: start: 20240608
  13. AZ [SODIUM BICARBONATE;SODIUM GUALENATE HYDRATE] [Concomitant]
     Indication: Stomatitis
     Dosage: UNK
     Dates: start: 20241003
  14. DEXTROSE [Concomitant]
     Active Substance: DEXTROSE MONOHYDRATE
     Dosage: UNK
     Dates: start: 20241018
  15. LASIX [Concomitant]
     Active Substance: FUROSEMIDE
     Indication: Fluid retention
     Dosage: 20 MG
     Dates: start: 20241013
  16. LASIX [Concomitant]
     Active Substance: FUROSEMIDE
     Dosage: 20 MG TWICE DAILY
     Dates: start: 20241019
  17. LASIX [Concomitant]
     Active Substance: FUROSEMIDE
     Dosage: 100 MG/DAY
     Route: 042
     Dates: start: 20241027
  18. TEICOPLANIN [Concomitant]
     Active Substance: TEICOPLANIN
     Indication: Febrile neutropenia
     Dosage: 300 MG EVERY OTHER DAY
     Dates: start: 20241015
  19. FILGRASTIM [Concomitant]
     Active Substance: FILGRASTIM
     Indication: Neutrophil count abnormal
     Dosage: UNK
     Dates: start: 20241016
  20. PROGRAF [Concomitant]
     Active Substance: TACROLIMUS
     Indication: Prophylaxis against graft versus host disease
     Dosage: 2 MG/DAY
     Dates: start: 20241016
  21. DALTEPARIN SODIUM [Concomitant]
     Active Substance: DALTEPARIN SODIUM
     Indication: Prophylaxis
     Dosage: UNK
     Dates: start: 20241005
  22. SODIUM CHLORIDE [Concomitant]
     Active Substance: SODIUM CHLORIDE
     Indication: Electrolyte imbalance
     Dosage: UNK
     Dates: start: 20241018
  23. KCL [Concomitant]
     Active Substance: POTASSIUM CHLORIDE
     Indication: Electrolyte imbalance
     Dosage: UNK
     Dates: start: 20241018
  24. CUPRIC SULFATE\FERRIC CHLORIDE\MANGANESE CHLORIDE\POTASSIUM IODIDE\ZIN [Concomitant]
     Active Substance: CUPRIC SULFATE\FERRIC CHLORIDE\MANGANESE CHLORIDE\POTASSIUM IODIDE\ZINC SULFATE
     Dosage: UNK
     Dates: start: 20241018
  25. MULTAMIN [ASCORBIC ACID;BIOTIN;COLECALCIFEROL;CYANOCOBALAMIN;FOLIC ACI [Concomitant]
     Indication: Malnutrition
     Dosage: UNK
     Dates: start: 20241018
  26. NOVOLIN R [Concomitant]
     Active Substance: INSULIN HUMAN
     Indication: Diabetes mellitus management
     Dosage: UNK
     Dates: start: 20241018
  27. PREVYMIS [Concomitant]
     Active Substance: LETERMOVIR
     Indication: Infection prophylaxis
     Dosage: 480 MG
     Dates: start: 20241019
  28. KIDMIN [ALANINE;ARGININE;ASPARTIC ACID;CYSTEINE;GLUTAMIC ACID;HISTIDIN [Concomitant]
     Indication: Malnutrition
     Dosage: UNK
     Dates: start: 20241019
  29. POSTERISAN FORTE [ESCHERICHIA COLI;HYDROCORTISONE] [Concomitant]
     Indication: Proctalgia
     Dosage: UNK
     Dates: start: 20241022
  30. FENTANYL CITRATE [Concomitant]
     Active Substance: FENTANYL CITRATE
     Indication: Sedation
     Dosage: UNK
     Dates: start: 20241024
  31. OMEPRAZOLE [Concomitant]
     Active Substance: OMEPRAZOLE
     Indication: Gastritis prophylaxis
     Dosage: UNK
     Dates: start: 20241024
  32. DORIPENEM MONOHYDRATE [Concomitant]
     Active Substance: DORIPENEM MONOHYDRATE
     Indication: Febrile neutropenia
     Dosage: 0.75 MG/DAY
     Dates: start: 20241025
  33. PRIMPERAN [Concomitant]
     Active Substance: METOCLOPRAMIDE HYDROCHLORIDE
     Indication: Nausea
     Dosage: UNK
     Dates: start: 20241025

REACTIONS (1)
  - Renal impairment [Not Recovered/Not Resolved]

NARRATIVE: CASE EVENT DATE: 20241028
